FAERS Safety Report 6834592-X (Version None)
Quarter: 2010Q3

REPORT INFORMATION
  Report Type: 
  Country: None (occurrence: None)
  Receive Date: 20100712
  Receipt Date: 20070522
  Transmission Date: 20110219
  Serious: No
  Sender: FDA-Public Use
  Company Number: US-PFIZER INC-2007032683

PATIENT
  Sex: Female
  Weight: 61.23 kg

DRUGS (2)
  1. CHANTIX [Suspect]
     Indication: SMOKING CESSATION THERAPY
     Route: 048
     Dates: start: 20070101
  2. ZOLOFT [Concomitant]
     Route: 048

REACTIONS (5)
  - HEADACHE [None]
  - NAUSEA [None]
  - SKIN WRINKLING [None]
  - THERAPEUTIC RESPONSE UNEXPECTED [None]
  - TREMOR [None]
